FAERS Safety Report 6340265-2 (Version None)
Quarter: 2009Q3

REPORT INFORMATION
  Report Type: 
  Country: None (occurrence: None)
  Receive Date: 20090902
  Receipt Date: 20090824
  Transmission Date: 20100115
  Serious: Yes (Hospitalization, Disabling)
  Sender: FDA-Public Use
  Company Number: OSCN-NO-0707S-0301

PATIENT
  Age: 59 Year
  Sex: Female

DRUGS (12)
  1. OMNISCAN [Suspect]
     Indication: BACK PAIN
     Dosage: SEE IMAGE
     Route: 042
     Dates: start: 20030526, end: 20030526
  2. OMNISCAN [Suspect]
     Indication: BACK PAIN
     Dosage: SEE IMAGE
     Route: 042
     Dates: start: 20041117, end: 20041117
  3. OMNISCAN [Suspect]
     Indication: BACK PAIN
     Dosage: SEE IMAGE
     Route: 042
     Dates: start: 20060204, end: 20060204
  4. OMNISCAN [Suspect]
     Indication: BACK PAIN
     Dosage: SEE IMAGE
     Route: 042
     Dates: start: 20060720, end: 20060720
  5. MEGLUMINE GADOTERATE (DOTAREM) [Concomitant]
  6. GADOPENTETATE DIMEGLUMINE (MAGNEVIST) [Concomitant]
  7. FLUOROURACIL [Concomitant]
  8. PROLEUKIN [Concomitant]
  9. INTRON A [Concomitant]
  10. VINBLASTINE SULFATE (VELBE) [Concomitant]
  11. CELECTOL [Concomitant]
  12. CIPROFIBRATE (LIPANOR) [Concomitant]

REACTIONS (7)
  - AUTOIMMUNE DISORDER [None]
  - DRUG LEVEL INCREASED [None]
  - INJECTION SITE EXTRAVASATION [None]
  - NEPHROGENIC SYSTEMIC FIBROSIS [None]
  - SENSORY DISTURBANCE [None]
  - SHOCK HAEMORRHAGIC [None]
  - SKIN DISCOLOURATION [None]
